FAERS Safety Report 8721810 (Version 2)
Quarter: 2013Q2

REPORT INFORMATION
  Report Type: Spontaneous
  Country: US (occurrence: None)
  Receive Date: 20120423
  Receipt Date: 20121227
  Transmission Date: 20140414
  Serious: Yes (Other)
  Sender: FDA-Public Use
  Company Number: PHEH2009US14012

PATIENT
  Age: 70 Year
  Sex: Female

DRUGS (5)
  1. EXJADE [Suspect]
     Indication: IRON OVERLOAD
     Dosage: 1000 MG, QD, ORAL
     Route: 048
     Dates: start: 20080402, end: 20090813
  2. EXJADE [Suspect]
     Indication: LYMPHATIC SYSTEM NEOPLASM
     Dosage: 1000 MG, QD, ORAL
     Route: 048
     Dates: start: 20080402, end: 20090813
  3. EXJADE [Suspect]
     Indication: HAEMATOPOIETIC NEOPLASM
     Dosage: 1000 MG, QD, ORAL
     Route: 048
     Dates: start: 20080402, end: 20090813
  4. REVLIMID [Concomitant]
  5. FILGRASTIM (FILGRASTIM) [Concomitant]

REACTIONS (7)
  - RENAL DISORDER [None]
  - CREATININE RENAL CLEARANCE DECREASED [None]
  - GLOMERULAR FILTRATION RATE DECREASED [None]
  - BLOOD CREATININE INCREASED [None]
  - PROTEIN TOTAL DECREASED [None]
  - White blood cell disorder [None]
  - Platelet count abnormal [None]
